FAERS Safety Report 10449138 (Version 2)
Quarter: 2014Q3

REPORT INFORMATION
  Report Type: Report from Study
  Country: ZA (occurrence: ZA)
  Receive Date: 20140912
  Receipt Date: 20140919
  Transmission Date: 20150326
  Serious: Yes (Hospitalization)
  Sender: FDA-Public Use
  Company Number: ZA-BRISTOL-MYERS SQUIBB COMPANY-21366067

PATIENT
  Age: 34 Year
  Sex: Male
  Weight: 51.8 kg

DRUGS (3)
  1. EFAVIRENZ [Suspect]
     Active Substance: EFAVIRENZ
     Indication: HIV INFECTION
     Route: 048
     Dates: start: 20131118
  2. TENOFOVIR DF + EMTRICITABINE [Suspect]
     Active Substance: EMTRICITABINE\TENOFOVIR DISOPROXIL FUMARATE
     Indication: HIV INFECTION
     Dosage: 1DF: 200/300MG
     Route: 048
     Dates: start: 20131118
  3. ISONIAZID. [Suspect]
     Active Substance: ISONIAZID
     Indication: HIV INFECTION
     Dosage: LAST DOSE: 05MAY2014
     Route: 048
     Dates: start: 20131121

REACTIONS (1)
  - Headache [Unknown]

NARRATIVE: CASE EVENT DATE: 20140818
